FAERS Safety Report 25116366 (Version 1)
Quarter: 2025Q1

REPORT INFORMATION
  Report Type: Report from Study
  Country: CO (occurrence: CO)
  Receive Date: 20250325
  Receipt Date: 20250325
  Transmission Date: 20250409
  Serious: Yes (Hospitalization)
  Sender: ALEXION PHARMACEUTICALS
  Company Number: CO-AstraZeneca-CH-00829058A

PATIENT
  Age: 91 Year
  Weight: 68 kg

DRUGS (1)
  1. SODIUM ZIRCONIUM CYCLOSILICATE [Suspect]
     Active Substance: SODIUM ZIRCONIUM CYCLOSILICATE
     Indication: Hyperkalaemia
     Dosage: 5 GRAM, QD

REACTIONS (7)
  - Asthenia [Recovered/Resolved]
  - Pain [Recovered/Resolved]
  - Blood cholesterol abnormal [Recovered/Resolved]
  - Blood triglycerides abnormal [Recovered/Resolved]
  - Blood creatinine abnormal [Recovered/Resolved]
  - Blood potassium abnormal [Recovered/Resolved]
  - Product dose omission issue [Recovered/Resolved]
